FAERS Safety Report 8120640-6 (Version None)
Quarter: 2012Q1

REPORT INFORMATION
  Report Type: 
  Country: None (occurrence: None)
  Receive Date: 20120207
  Receipt Date: 20120206
  Transmission Date: 20120608
  Serious: Yes (Hospitalization)
  Sender: FDA-Public Use
  Company Number: BE-ROCHE-1006417

PATIENT
  Sex: Female
  Weight: 66.5 kg

DRUGS (13)
  1. AZA [Concomitant]
     Dates: start: 20111025
  2. BISOPROLOL FUMARATE [Concomitant]
  3. PRAREDUCT [Concomitant]
  4. MYCOPHENOLATE MOFETIL (CELLCEPT) [Suspect]
     Indication: VASCULITIS
     Dates: start: 20110615, end: 20111025
  5. PANTOMED (BELGIUM) [Concomitant]
  6. PREDNISOLONE [Concomitant]
  7. NOLVADEX [Concomitant]
  8. STEOVIT D3 [Concomitant]
     Dosage: 1000/800 MG
  9. METFORMIN HCL [Concomitant]
  10. SOTALOL HCL [Concomitant]
     Dosage: 2X 0.25 W/OL
  11. ASPIRIN [Concomitant]
  12. EUSAPRIM [Concomitant]
     Dosage: 400/80 MG
  13. MOTILIUM (BELGIUM) [Concomitant]

REACTIONS (3)
  - OESOPHAGEAL CANDIDIASIS [None]
  - WEGENER'S GRANULOMATOSIS [None]
  - VOMITING [None]
